FAERS Safety Report 7937470-8 (Version None)
Quarter: 2011Q4

REPORT INFORMATION
  Report Type: 
  Country: None (occurrence: None)
  Receive Date: 20111123
  Receipt Date: 20111117
  Transmission Date: 20120403
  Serious: Yes (Life-Threatening, Hospitalization, Other)
  Sender: FDA-Public Use
  Company Number: PHHY2011DE101500

PATIENT
  Age: 50 Year
  Sex: Male
  Weight: 107 kg

DRUGS (15)
  1. REFLUDAN [Concomitant]
     Dosage: 15 MG, QD
     Route: 058
     Dates: start: 20111107
  2. EMBOLEX [Suspect]
     Dosage: 0.5 ML, QD
     Route: 058
     Dates: start: 20111019, end: 20111024
  3. ENALAPRIL MALEATE [Concomitant]
     Dosage: 5 MG, QD
     Dates: start: 20111019, end: 20111024
  4. TRIAMTERENE AND HYDROCHLOROTHIAZIDE [Concomitant]
     Dosage: 1 DF, QD
     Route: 048
     Dates: start: 20111019, end: 20111023
  5. REFLUDAN [Concomitant]
     Dosage: 30 MG, QD
     Route: 058
     Dates: start: 20111102, end: 20111107
  6. ASPIRIN [Concomitant]
     Dosage: 100 MG, QD
     Route: 048
     Dates: start: 20111019, end: 20111104
  7. NEXIUM [Concomitant]
     Dosage: 1 DF, QD
     Route: 048
     Dates: start: 20111024, end: 20111101
  8. NEXIUM [Concomitant]
     Dosage: 20 MG, QD
     Route: 048
     Dates: start: 20111104, end: 20111107
  9. LASIX [Concomitant]
     Dosage: 2 DF, QD
     Route: 048
     Dates: start: 20111019, end: 20111023
  10. EMBOLEX [Suspect]
     Dosage: 1 MG, QD
     Route: 058
     Dates: start: 20111101, end: 20111102
  11. HEPARIN [Suspect]
     Route: 042
     Dates: start: 20111018
  12. BELOC MITE [Concomitant]
     Dosage: 25 MG, QD
     Route: 048
     Dates: start: 20111019, end: 20111107
  13. ACETAMINOPHEN [Concomitant]
     Dosage: 1 G
     Route: 042
     Dates: start: 20111018
  14. CEFOTIAM HYDROCHLORIDE [Concomitant]
     Dosage: 4 G, QD
     Route: 042
     Dates: start: 20111018
  15. MARCUMAR [Concomitant]
     Dosage: 1 DF, QD
     Route: 048
     Dates: start: 20111102, end: 20111107

REACTIONS (12)
  - HAEMOGLOBIN DECREASED [None]
  - HEPARIN-INDUCED THROMBOCYTOPENIA [None]
  - RED BLOOD CELL COUNT DECREASED [None]
  - BLOOD FIBRINOGEN INCREASED [None]
  - HAEMATOCRIT DECREASED [None]
  - FIBRIN D DIMER INCREASED [None]
  - ASPARTATE AMINOTRANSFERASE INCREASED [None]
  - INTERNATIONAL NORMALISED RATIO DECREASED [None]
  - THROMBIN TIME PROLONGED [None]
  - BLOOD LACTATE DEHYDROGENASE INCREASED [None]
  - C-REACTIVE PROTEIN INCREASED [None]
  - WHITE BLOOD CELL COUNT INCREASED [None]
